FAERS Safety Report 7776895-0 (Version None)
Quarter: 2011Q3

REPORT INFORMATION
  Report Type: 
  Country: None (occurrence: None)
  Receive Date: 20110926
  Receipt Date: 20110909
  Transmission Date: 20111222
  Serious: Yes (Hospitalization)
  Sender: FDA-Public Use
  Company Number: IT-BAYER-2011-078285

PATIENT
  Age: 45 Year
  Sex: Female

DRUGS (6)
  1. ASPIRIN [Suspect]
     Indication: MYOCARDIAL INFARCTION
     Dosage: 100 MG, QD
     Route: 048
     Dates: start: 20100101
  2. ATORVASTATIN CALCIUM [Concomitant]
     Dosage: DAILY DOSE 40 MG
     Route: 048
     Dates: start: 20100101, end: 20110521
  3. AMOXICILLIN TRIHYDRATE [Suspect]
     Indication: TOOTH ABSCESS
     Dosage: DAILY DOSE 2 G
     Route: 048
     Dates: start: 20110516, end: 20110521
  4. SEQUACOR [Concomitant]
     Dosage: DAILY DOSE 2.5 MG
     Route: 048
     Dates: start: 20100101, end: 20110521
  5. AULIN [Suspect]
     Indication: TOOTH ABSCESS
     Dosage: DAILY DOSE 100 MG
     Route: 048
     Dates: start: 20110516, end: 20110521
  6. MEPRAL [Concomitant]
     Indication: GASTROOESOPHAGEAL REFLUX DISEASE
     Dosage: DAILY DOSE 20 MG
     Route: 048
     Dates: start: 20110201, end: 20110521

REACTIONS (2)
  - ANXIETY [None]
  - ABDOMINAL PAIN UPPER [None]
